FAERS Safety Report 7720055-6 (Version None)
Quarter: 2011Q3

REPORT INFORMATION
  Report Type: 
  Country: None (occurrence: None)
  Receive Date: 20110824
  Receipt Date: 20110809
  Transmission Date: 20111222
  Serious: Yes (Disabling)
  Sender: FDA-Public Use
  Company Number: 2011MA011594

PATIENT
  Age: 49 Year
  Sex: Male

DRUGS (1)
  1. PHENOBARBITAL TAB [Suspect]
     Indication: CEREBRAL ISCHAEMIA
     Dosage: 100 MG;QD

REACTIONS (3)
  - DISEASE RECURRENCE [None]
  - NODULE [None]
  - FIBROMATOSIS [None]
